FAERS Safety Report 5875950-X (Version None)
Quarter: 2008Q3

REPORT INFORMATION
  Report Type: 
  Country: None (occurrence: None)
  Receive Date: 20080905
  Receipt Date: 20080821
  Transmission Date: 20090109
  Serious: Yes (Other)
  Sender: FDA-Public Use
  Company Number: 2008S1015488

PATIENT
  Age: 6 Year
  Sex: Female

DRUGS (6)
  1. TERBINAFINE HYDROCHLORIDE [Suspect]
     Indication: DERMATOPHYTOSIS
     Dosage: 250 MG; DAILY; ORAL
     Route: 048
     Dates: start: 20080624, end: 20080721
  2. ATENOLOL [Concomitant]
  3. AVANDAMET [Concomitant]
  4. BENDROFLUAZIDE [Concomitant]
  5. IRBESARTAN [Concomitant]
  6. SIMVASTATIN [Concomitant]

REACTIONS (1)
  - DERMATITIS EXFOLIATIVE [None]
